FAERS Safety Report 18363670 (Version 1)
Quarter: 2020Q4

REPORT INFORMATION
  Report Type: Spontaneous
  Country: US (occurrence: US)
  Receive Date: 20201009
  Receipt Date: 20201009
  Transmission Date: 20210114
  Serious: No
  Sender: FDA-Public Use
  Company Number: US-LUPIN PHARMACEUTICALS INC.-2020-00377

PATIENT
  Age: 53 Year
  Sex: Female
  Weight: 62.59 kg

DRUGS (3)
  1. CLOBETASOL PROPIONATE TOPICAL SOLUTION USP, 0.05 % [Suspect]
     Active Substance: CLOBETASOL PROPIONATE
     Indication: LICHEN PLANOPILARIS
     Dosage: UNK UNK, BID
     Route: 061
     Dates: start: 20200119
  2. ORACEA [Concomitant]
     Active Substance: DOXYCYCLINE
     Indication: LICHEN PLANOPILARIS
     Dosage: UNK
     Route: 065
  3. ROGAINE [Interacting]
     Active Substance: MINOXIDIL
     Indication: LICHEN PLANOPILARIS
     Dosage: UNK
     Route: 065
     Dates: start: 20200119

REACTIONS (7)
  - Product appearance confusion [Unknown]
  - Product substitution issue [Unknown]
  - Application site erythema [Not Recovered/Not Resolved]
  - Application site pruritus [Not Recovered/Not Resolved]
  - Application site warmth [Not Recovered/Not Resolved]
  - Drug interaction [Unknown]
  - Product use complaint [Unknown]

NARRATIVE: CASE EVENT DATE: 20200119
